FAERS Safety Report 25148876 (Version 1)
Quarter: 2025Q2

REPORT INFORMATION
  Report Type: Report from Study
  Country: US (occurrence: US)
  Receive Date: 20250402
  Receipt Date: 20250402
  Transmission Date: 20250717
  Serious: Yes (Hospitalization, Other)
  Sender: ABBVIE
  Company Number: US-ABBVIE-6170272

PATIENT
  Age: 51 Year
  Sex: Male
  Weight: 88.45 kg

DRUGS (3)
  1. RINVOQ [Suspect]
     Active Substance: UPADACITINIB
     Indication: Dermatitis atopic
     Route: 048
     Dates: start: 20250320
  2. RINVOQ [Suspect]
     Active Substance: UPADACITINIB
     Indication: Dermatitis atopic
     Route: 048
     Dates: start: 20240524, end: 202502
  3. LOSARTAN [Concomitant]
     Active Substance: LOSARTAN
     Indication: Hypertension

REACTIONS (5)
  - Gastrointestinal pain [Recovering/Resolving]
  - Diverticulitis [Recovering/Resolving]
  - Liver function test abnormal [Not Recovered/Not Resolved]
  - Bacterial abdominal infection [Recovered/Resolved]
  - Gastric haemorrhage [Unknown]

NARRATIVE: CASE EVENT DATE: 20250101
